FAERS Safety Report 19181595 (Version 5)
Quarter: 2021Q4

REPORT INFORMATION
  Report Type: Report from Study
  Country: US (occurrence: US)
  Receive Date: 20210426
  Receipt Date: 20211218
  Transmission Date: 20220303
  Serious: Yes (Other)
  Sender: FDA-Public Use
  Company Number: NVSC2021US094167

PATIENT
  Sex: Male

DRUGS (1)
  1. ENTRESTO [Suspect]
     Active Substance: SACUBITRIL\VALSARTAN
     Indication: Product used for unknown indication
     Dosage: UNK UNK, BID
     Route: 048
     Dates: start: 202104

REACTIONS (7)
  - Arrhythmia [Recovered/Resolved]
  - Sleep apnoea syndrome [Unknown]
  - COVID-19 [Unknown]
  - Ventricular extrasystoles [Unknown]
  - Fatigue [Unknown]
  - Dizziness postural [Unknown]
  - Dizziness [Unknown]
